FAERS Safety Report 5986358-0 (Version None)
Quarter: 2008Q4

REPORT INFORMATION
  Report Type: 
  Country: None (occurrence: None)
  Receive Date: 20081209
  Receipt Date: 20081128
  Transmission Date: 20090506
  Serious: Yes (Hospitalization, Disabling)
  Sender: FDA-Public Use
  Company Number: JP-NOVOPROD-281520

PATIENT
  Age: 71 Year
  Sex: Male
  Weight: 57 kg

DRUGS (6)
  1. INNOLET R CHU [Suspect]
     Indication: TYPE 2 DIABETES MELLITUS
     Dosage: 18 IU, QD
     Route: 058
     Dates: start: 20051021
  2. PLAVIX [Concomitant]
     Dosage: 75 MG, QD
     Route: 048
     Dates: start: 20080414
  3. LIVALO [Concomitant]
     Dosage: 2 MG, QD
     Route: 048
     Dates: start: 20071105
  4. MICARDIS [Concomitant]
     Dosage: 80 MG, QD
     Route: 048
     Dates: start: 20070813
  5. TOFRANIL [Concomitant]
     Dosage: 20 MG, QD
     Route: 048
     Dates: start: 19990629
  6. ASPIRIN [Concomitant]
     Dosage: 100 MG, QD
     Route: 048
     Dates: start: 19990209

REACTIONS (2)
  - HYPOGLYCAEMIC ENCEPHALOPATHY [None]
  - HYPOGLYCAEMIC UNCONSCIOUSNESS [None]
